FAERS Safety Report 13995461 (Version 6)
Quarter: 2018Q4

REPORT INFORMATION
  Report Type: Report from Study
  Country: None (occurrence: US)
  Receive Date: 20170921
  Receipt Date: 20181218
  Transmission Date: 20190204
  Serious: Yes (Hospitalization, Other)
  Sender: FDA-Public Use
  Company Number: US-ABBVIE-17K-163-2107419-00

PATIENT
  Age: 64 Year
  Sex: Female
  Weight: 131.66 kg

DRUGS (1)
  1. HUMIRA [Suspect]
     Active Substance: ADALIMUMAB
     Indication: CROHN^S DISEASE
     Route: 058

REACTIONS (11)
  - Psoriasis [Unknown]
  - Osteoarthritis [Recovering/Resolving]
  - Sinusitis [Unknown]
  - Arthralgia [Unknown]
  - Seasonal allergy [Unknown]
  - Shoulder arthroplasty [Unknown]
  - Cyst [Unknown]
  - Polyp [Unknown]
  - Musculoskeletal pain [Not Recovered/Not Resolved]
  - Intestinal mass [Unknown]
  - Ear infection fungal [Unknown]

NARRATIVE: CASE EVENT DATE: 20160301
